FAERS Safety Report 11782339 (Version 2)
Quarter: 2016Q1

REPORT INFORMATION
  Report Type: Spontaneous
  Country: US (occurrence: US)
  Receive Date: 20151127
  Receipt Date: 20160111
  Transmission Date: 20160525
  Serious: No
  Sender: FDA-Public Use
  Company Number: US-ASTRAZENECA-2015SF19499

PATIENT
  Age: 83 Year
  Sex: Male
  Weight: 75.8 kg

DRUGS (6)
  1. ASPIRIN. [Concomitant]
     Active Substance: ASPIRIN
     Indication: BLOOD DISORDER
     Dates: start: 200005
  2. PLAVIX [Concomitant]
     Active Substance: CLOPIDOGREL BISULFATE
     Indication: BLOOD DISORDER
     Dates: start: 201509
  3. ZOCOR [Concomitant]
     Active Substance: SIMVASTATIN
     Indication: BLOOD CHOLESTEROL ABNORMAL
     Dates: start: 201005
  4. NITROGLYCERIN. [Concomitant]
     Active Substance: NITROGLYCERIN
     Indication: CARDIAC DISORDER
     Dates: start: 201509
  5. ASPIRIN. [Concomitant]
     Active Substance: ASPIRIN
     Indication: BLOOD DISORDER
     Dates: start: 200005
  6. NEXIUM 24HR [Suspect]
     Active Substance: ESOMEPRAZOLE MAGNESIUM
     Route: 048
     Dates: start: 20151120, end: 20151121

REACTIONS (3)
  - Hypotension [Recovered/Resolved]
  - Dizziness [Recovered/Resolved]
  - Product use issue [Recovered/Resolved]

NARRATIVE: CASE EVENT DATE: 20151120
